FAERS Safety Report 5218014-0 (Version None)
Quarter: 2007Q1

REPORT INFORMATION
  Report Type: 
  Country: None (occurrence: None)
  Receive Date: 20061130
  Receipt Date: 20060918
  Transmission Date: 20070707
  Serious: Yes (Hospitalization)
  Sender: FDA-Public Use
  Company Number: US200607001352

PATIENT
  Age: 49 Year
  Sex: Female
  Weight: 94.8 kg

DRUGS (2)
  1. ZYPREXA [Suspect]
     Dosage: 10 MG
     Dates: start: 19980701, end: 20010601
  2. ANAFRANIL  /GFR/(CLOMIPRAMINE HYDROCHLORIDE) [Concomitant]

REACTIONS (1)
  - DIABETES MELLITUS [None]
